FAERS Safety Report 4860375-6 (Version None)
Quarter: 2005Q4

REPORT INFORMATION
  Report Type: 
  Country: None (occurrence: None)
  Receive Date: 20051215
  Receipt Date: 20051205
  Transmission Date: 20060501
  Serious: No
  Sender: FDA-Public Use
  Company Number: CLOF-10162

PATIENT
  Age: 13 Year
  Sex: 0
  Weight: 18 kg

DRUGS (1)
  1. CLOFARABINE [Suspect]
     Indication: ACUTE MYELOID LEUKAEMIA
     Dosage: 52 MG/M2 QD X 5 IV
     Route: 042
     Dates: start: 20051114

REACTIONS (3)
  - DRUG TOXICITY [None]
  - HYPERSENSITIVITY [None]
  - SYSTEMIC INFLAMMATORY RESPONSE SYNDROME [None]
